FAERS Safety Report 18658505 (Version 1)
Quarter: 2020Q4

REPORT INFORMATION
  Report Type: Report from Study
  Country: US (occurrence: US)
  Receive Date: 20201223
  Receipt Date: 20201223
  Transmission Date: 20210114
  Serious: Yes (Hospitalization)
  Sender: FDA-Public Use
  Company Number: US-TEVA-2020-US-1860461

PATIENT
  Age: 59 Year
  Sex: Male

DRUGS (3)
  1. FLOXURIDINE. [Suspect]
     Active Substance: FLOXURIDINE
     Indication: OESOPHAGEAL CARCINOMA
     Dosage: 100MG ONCE IN A WEEK
     Route: 065
  2. IRINOTECAN [Suspect]
     Active Substance: IRINOTECAN
     Indication: OESOPHAGEAL CARCINOMA
     Dosage: 65 MG ONCE IN A WEEK
     Route: 065
  3. CETUXIMAB. [Suspect]
     Active Substance: CETUXIMAB
     Indication: OESOPHAGEAL CARCINOMA
     Dosage: 100MG ONCE IN A WEEK
     Route: 065

REACTIONS (1)
  - Pancreatitis acute [Unknown]
